FAERS Safety Report 7215898-1 (Version None)
Quarter: 2011Q1

REPORT INFORMATION
  Report Type: 
  Country: None (occurrence: None)
  Receive Date: 20110107
  Receipt Date: 20101229
  Transmission Date: 20110831
  Serious: Yes (Hospitalization)
  Sender: FDA-Public Use
  Company Number: BR-ASTRAZENECA-2010SE61414

PATIENT
  Age: 58 Year
  Sex: Male

DRUGS (2)
  1. UNKNOWN [Concomitant]
     Indication: GLUCOSE TOLERANCE IMPAIRED
     Dosage: AS REQUIRED
     Route: 048
  2. ATACAND [Suspect]
     Indication: HYPERTENSION
     Route: 048
     Dates: start: 20100101, end: 20101201

REACTIONS (2)
  - BLOOD PRESSURE INADEQUATELY CONTROLLED [None]
  - ROAD TRAFFIC ACCIDENT [None]
